FAERS Safety Report 8084150 (Version 3)
Quarter: 2012Q4

REPORT INFORMATION
  Report Type: Report from Study
  Country: PK (occurrence: PK)
  Receive Date: 20110810
  Receipt Date: 20121226
  Transmission Date: 20130627
  Serious: Yes (Hospitalization)
  Sender: FDA-Public Use
  Company Number: PK-ROCHE-698221

PATIENT
  Age: 50 Year
  Sex: Female
  Weight: 64 kg

DRUGS (3)
  1. PEG-INTERFERON ALFA 2A [Suspect]
     Indication: HEPATITIS C
     Route: 058
     Dates: start: 20100225, end: 20100418
  2. RIBAZOLE [Suspect]
     Indication: HEPATITIS C
     Route: 048
     Dates: start: 20100225, end: 20100418
  3. INDERAL [Concomitant]
     Indication: HYPERTENSION
     Route: 048

REACTIONS (3)
  - Dyspnoea [Recovered/Resolved]
  - Diarrhoea [Recovered/Resolved]
  - Hepatic cirrhosis [Unknown]
